FAERS Safety Report 7367794-7 (Version None)
Quarter: 2011Q1

REPORT INFORMATION
  Report Type: 
  Country: None (occurrence: None)
  Receive Date: 20110322
  Receipt Date: 20110315
  Transmission Date: 20110831
  Serious: Yes (Other)
  Sender: FDA-Public Use
  Company Number: US-ABBOTT-11P-163-0712723-00

PATIENT
  Sex: Male
  Weight: 93.07 kg

DRUGS (2)
  1. HUMIRA [Suspect]
     Dates: start: 20110215
  2. HUMIRA [Suspect]
     Indication: RHEUMATOID ARTHRITIS
     Dates: start: 20101201, end: 20110101

REACTIONS (2)
  - ARTHRALGIA [None]
  - ABASIA [None]
